FAERS Safety Report 25059234 (Version 1)
Quarter: 2025Q1

REPORT INFORMATION
  Report Type: Spontaneous
  Country: CA (occurrence: CA)
  Receive Date: 20250310
  Receipt Date: 20250310
  Transmission Date: 20250409
  Serious: Yes (Life-Threatening, Hospitalization, Disabling, Other)
  Sender: BRISTOL-MYERS SQUIBB COMPANY
  Company Number: CA-BRISTOL-MYERS SQUIBB COMPANY-2025-029292

PATIENT
  Age: 50 Year
  Sex: Female
  Weight: 97 kg

DRUGS (297)
  1. ORENCIA [Suspect]
     Active Substance: ABATACEPT
     Indication: Rheumatoid arthritis
     Route: 042
  2. ORENCIA [Suspect]
     Active Substance: ABATACEPT
     Indication: Rheumatoid arthritis
     Route: 058
  3. ORENCIA [Suspect]
     Active Substance: ABATACEPT
     Route: 058
  4. ORENCIA [Suspect]
     Active Substance: ABATACEPT
     Route: 058
  5. ORENCIA [Suspect]
     Active Substance: ABATACEPT
     Route: 058
  6. ORENCIA [Suspect]
     Active Substance: ABATACEPT
     Route: 058
  7. ORENCIA [Suspect]
     Active Substance: ABATACEPT
     Indication: Rheumatoid arthritis
     Route: 048
  8. ORENCIA [Suspect]
     Active Substance: ABATACEPT
  9. ORENCIA [Suspect]
     Active Substance: ABATACEPT
     Route: 015
  10. ACETAMINOPHEN [Concomitant]
     Active Substance: ACETAMINOPHEN
     Indication: Rheumatoid arthritis
  11. ACETAMINOPHEN [Concomitant]
     Active Substance: ACETAMINOPHEN
  12. ACETAMINOPHEN [Concomitant]
     Active Substance: ACETAMINOPHEN
     Route: 048
  13. ACETAMINOPHEN [Concomitant]
     Active Substance: ACETAMINOPHEN
  14. ACETAMINOPHEN [Concomitant]
     Active Substance: ACETAMINOPHEN
  15. ACETAMINOPHEN [Concomitant]
     Active Substance: ACETAMINOPHEN
  16. ACETAMINOPHEN [Concomitant]
     Active Substance: ACETAMINOPHEN
  17. ACETAMINOPHEN [Concomitant]
     Active Substance: ACETAMINOPHEN
  18. ACETAMINOPHEN [Concomitant]
     Active Substance: ACETAMINOPHEN
  19. ACTEMRA [Concomitant]
     Active Substance: TOCILIZUMAB
     Indication: Rheumatoid arthritis
     Route: 058
  20. ACTEMRA [Concomitant]
     Active Substance: TOCILIZUMAB
     Route: 042
  21. ACTEMRA [Concomitant]
     Active Substance: TOCILIZUMAB
     Route: 048
  22. ACTEMRA [Concomitant]
     Active Substance: TOCILIZUMAB
     Route: 042
  23. ACTEMRA [Concomitant]
     Active Substance: TOCILIZUMAB
     Route: 042
  24. ACTEMRA [Concomitant]
     Active Substance: TOCILIZUMAB
  25. ACTEMRA [Concomitant]
     Active Substance: TOCILIZUMAB
     Route: 042
  26. ACTEMRA [Concomitant]
     Active Substance: TOCILIZUMAB
     Route: 042
  27. ACTEMRA [Concomitant]
     Active Substance: TOCILIZUMAB
     Route: 042
  28. ACTEMRA [Concomitant]
     Active Substance: TOCILIZUMAB
  29. ACTEMRA [Concomitant]
     Active Substance: TOCILIZUMAB
     Route: 042
  30. ACTEMRA [Concomitant]
     Active Substance: TOCILIZUMAB
     Route: 042
  31. ACTEMRA [Concomitant]
     Active Substance: TOCILIZUMAB
     Route: 042
  32. ACTEMRA [Concomitant]
     Active Substance: TOCILIZUMAB
     Route: 042
  33. ACTEMRA [Concomitant]
     Active Substance: TOCILIZUMAB
     Route: 042
  34. ACTEMRA [Concomitant]
     Active Substance: TOCILIZUMAB
     Route: 042
  35. ACTEMRA [Concomitant]
     Active Substance: TOCILIZUMAB
  36. ACTEMRA [Concomitant]
     Active Substance: TOCILIZUMAB
     Route: 042
  37. ACTEMRA [Concomitant]
     Active Substance: TOCILIZUMAB
     Route: 042
  38. ACTEMRA [Concomitant]
     Active Substance: TOCILIZUMAB
     Route: 042
  39. ACTEMRA [Concomitant]
     Active Substance: TOCILIZUMAB
     Route: 042
  40. ALENDRONATE SODIUM [Concomitant]
     Active Substance: ALENDRONATE SODIUM
     Indication: Rheumatoid arthritis
     Route: 048
  41. ALENDRONATE SODIUM [Concomitant]
     Active Substance: ALENDRONATE SODIUM
     Route: 048
  42. ALENDRONATE SODIUM [Concomitant]
     Active Substance: ALENDRONATE SODIUM
     Route: 048
  43. PANTOPRAZOLE SODIUM ANHYDROUS [Concomitant]
     Active Substance: PANTOPRAZOLE SODIUM ANHYDROUS
     Indication: Product used for unknown indication
     Route: 048
  44. PANTOPRAZOLE SODIUM ANHYDROUS [Concomitant]
     Active Substance: PANTOPRAZOLE SODIUM ANHYDROUS
  45. PANTOPRAZOLE SODIUM ANHYDROUS [Concomitant]
     Active Substance: PANTOPRAZOLE SODIUM ANHYDROUS
     Route: 048
  46. PANTOPRAZOLE SODIUM ANHYDROUS [Concomitant]
     Active Substance: PANTOPRAZOLE SODIUM ANHYDROUS
  47. PANTOPRAZOLE SODIUM ANHYDROUS [Concomitant]
     Active Substance: PANTOPRAZOLE SODIUM ANHYDROUS
  48. PANTOPRAZOLE SODIUM ANHYDROUS [Concomitant]
     Active Substance: PANTOPRAZOLE SODIUM ANHYDROUS
  49. PANTOPRAZOLE SODIUM ANHYDROUS [Concomitant]
     Active Substance: PANTOPRAZOLE SODIUM ANHYDROUS
  50. PANTOPRAZOLE SODIUM ANHYDROUS [Concomitant]
     Active Substance: PANTOPRAZOLE SODIUM ANHYDROUS
  51. PANTOPRAZOLE SODIUM ANHYDROUS [Concomitant]
     Active Substance: PANTOPRAZOLE SODIUM ANHYDROUS
  52. PANTOPRAZOLE SODIUM ANHYDROUS [Concomitant]
     Active Substance: PANTOPRAZOLE SODIUM ANHYDROUS
  53. PREDNISONE [Concomitant]
     Active Substance: PREDNISONE
     Indication: Rheumatoid arthritis
  54. APREPITANT [Concomitant]
     Active Substance: APREPITANT
     Indication: Product used for unknown indication
     Route: 042
  55. ARAVA [Concomitant]
     Active Substance: LEFLUNOMIDE
     Indication: Rheumatoid arthritis
     Route: 048
  56. ARAVA [Concomitant]
     Active Substance: LEFLUNOMIDE
     Route: 048
  57. ARAVA [Concomitant]
     Active Substance: LEFLUNOMIDE
  58. AZULFIDINE [Concomitant]
     Active Substance: SULFASALAZINE
     Indication: Product used for unknown indication
  59. CERTOLIZUMAB PEGOL [Concomitant]
     Active Substance: CERTOLIZUMAB PEGOL
     Indication: Rheumatoid arthritis
     Route: 058
  60. CETIRIZINE [Concomitant]
     Active Substance: CETIRIZINE HYDROCHLORIDE
     Indication: Rheumatoid arthritis
  61. CETIRIZINE [Concomitant]
     Active Substance: CETIRIZINE HYDROCHLORIDE
  62. CETIRIZINE [Concomitant]
     Active Substance: CETIRIZINE HYDROCHLORIDE
  63. CETIRIZINE [Concomitant]
     Active Substance: CETIRIZINE HYDROCHLORIDE
     Route: 016
  64. CETIRIZINE [Concomitant]
     Active Substance: CETIRIZINE HYDROCHLORIDE
  65. CETIRIZINE [Concomitant]
     Active Substance: CETIRIZINE HYDROCHLORIDE
     Route: 061
  66. CETIRIZINE [Concomitant]
     Active Substance: CETIRIZINE HYDROCHLORIDE
  67. CETIRIZINE [Concomitant]
     Active Substance: CETIRIZINE HYDROCHLORIDE
  68. CETIRIZINE [Concomitant]
     Active Substance: CETIRIZINE HYDROCHLORIDE
  69. CETIRIZINE [Concomitant]
     Active Substance: CETIRIZINE HYDROCHLORIDE
  70. CETIRIZINE [Concomitant]
     Active Substance: CETIRIZINE HYDROCHLORIDE
  71. CETIRIZINE [Concomitant]
     Active Substance: CETIRIZINE HYDROCHLORIDE
  72. CETIRIZINE HYDROCHLORIDE [Concomitant]
     Active Substance: CETIRIZINE HYDROCHLORIDE
     Indication: Product used for unknown indication
  73. CETIRIZINE HYDROCHLORIDE [Concomitant]
     Active Substance: CETIRIZINE HYDROCHLORIDE
  74. CETIRIZINE HYDROCHLORIDE [Concomitant]
     Active Substance: CETIRIZINE HYDROCHLORIDE
  75. CETIRIZINE HYDROCHLORIDE [Concomitant]
     Active Substance: CETIRIZINE HYDROCHLORIDE
  76. CETIRIZINE HYDROCHLORIDE [Concomitant]
     Active Substance: CETIRIZINE HYDROCHLORIDE
  77. CETIRIZINE HYDROCHLORIDE [Concomitant]
     Active Substance: CETIRIZINE HYDROCHLORIDE
  78. CETIRIZINE HYDROCHLORIDE [Concomitant]
     Active Substance: CETIRIZINE HYDROCHLORIDE
  79. CETIRIZINE HYDROCHLORIDE [Concomitant]
     Active Substance: CETIRIZINE HYDROCHLORIDE
  80. CETIRIZINE HYDROCHLORIDE [Concomitant]
     Active Substance: CETIRIZINE HYDROCHLORIDE
  81. CETIRIZINE HYDROCHLORIDE [Concomitant]
     Active Substance: CETIRIZINE HYDROCHLORIDE
  82. CHLORAPREP [Concomitant]
     Active Substance: CHLORHEXIDINE GLUCONATE\ISOPROPYL ALCOHOL
     Indication: Product used for unknown indication
     Route: 061
  83. CHLORAPREP [Concomitant]
     Active Substance: CHLORHEXIDINE GLUCONATE\ISOPROPYL ALCOHOL
     Route: 061
  84. CHLORAPREP [Concomitant]
     Active Substance: CHLORHEXIDINE GLUCONATE\ISOPROPYL ALCOHOL
     Route: 048
  85. CHLORAPREP [Concomitant]
     Active Substance: CHLORHEXIDINE GLUCONATE\ISOPROPYL ALCOHOL
     Route: 048
  86. CHLORAPREP [Concomitant]
     Active Substance: CHLORHEXIDINE GLUCONATE\ISOPROPYL ALCOHOL
  87. CHLORHEXIDINE [Concomitant]
     Active Substance: CHLORHEXIDINE
     Indication: Rheumatoid arthritis
     Route: 061
  88. CHLORHEXIDINE [Concomitant]
     Active Substance: CHLORHEXIDINE
     Route: 002
  89. CHLORHEXIDINE [Concomitant]
     Active Substance: CHLORHEXIDINE
     Route: 048
  90. CHLORHEXIDINE GLUCONATE [Concomitant]
     Active Substance: CHLORHEXIDINE GLUCONATE
     Indication: Product used for unknown indication
     Route: 061
  91. CHLORHEXIDINE GLUCONATE [Concomitant]
     Active Substance: CHLORHEXIDINE GLUCONATE
     Route: 048
  92. CHLORHEXIDINE GLUCONATE [Concomitant]
     Active Substance: CHLORHEXIDINE GLUCONATE
  93. CHLORHEXIDINE GLUCONATE [Concomitant]
     Active Substance: CHLORHEXIDINE GLUCONATE
     Route: 048
  94. CHLORHEXIDINE GLUCONATE [Concomitant]
     Active Substance: CHLORHEXIDINE GLUCONATE
     Route: 002
  95. CHOLECALCIFEROL [Concomitant]
     Active Substance: CHOLECALCIFEROL
     Indication: Product used for unknown indication
  96. CIMZIA [Concomitant]
     Active Substance: CERTOLIZUMAB PEGOL
     Indication: Rheumatoid arthritis
     Route: 058
  97. CIMZIA [Concomitant]
     Active Substance: CERTOLIZUMAB PEGOL
     Route: 042
  98. CIMZIA [Concomitant]
     Active Substance: CERTOLIZUMAB PEGOL
     Route: 042
  99. CIMZIA [Concomitant]
     Active Substance: CERTOLIZUMAB PEGOL
     Route: 058
  100. CLIOQUINOL [Concomitant]
     Active Substance: CLIOQUINOL
     Indication: Rheumatoid arthritis
     Route: 058
  101. DESOGESTREL\ETHINYL ESTRADIOL [Concomitant]
     Active Substance: DESOGESTREL\ETHINYL ESTRADIOL
     Indication: Product used for unknown indication
  102. DESOGESTREL\ETHINYL ESTRADIOL [Concomitant]
     Active Substance: DESOGESTREL\ETHINYL ESTRADIOL
  103. DESOXIMETASONE [Concomitant]
     Active Substance: DESOXIMETASONE
     Indication: Rheumatoid arthritis
  104. DESOXIMETASONE [Concomitant]
     Active Substance: DESOXIMETASONE
     Route: 016
  105. DESOXIMETASONE [Concomitant]
     Active Substance: DESOXIMETASONE
     Route: 058
  106. DESOXIMETASONE [Concomitant]
     Active Substance: DESOXIMETASONE
     Route: 048
  107. DESOXIMETASONE [Concomitant]
     Active Substance: DESOXIMETASONE
     Route: 058
  108. DESOXIMETASONE [Concomitant]
     Active Substance: DESOXIMETASONE
     Route: 003
  109. DESOXIMETASONE [Concomitant]
     Active Substance: DESOXIMETASONE
     Route: 061
  110. DICLOFENAC [Concomitant]
     Active Substance: DICLOFENAC
     Indication: Product used for unknown indication
  111. DICLOFENAC [Concomitant]
     Active Substance: DICLOFENAC
     Route: 047
  112. DICLOFENAC POTASSIUM [Concomitant]
     Active Substance: DICLOFENAC POTASSIUM
     Indication: Rheumatoid arthritis
     Route: 048
  113. DICLOFENAC SODIUM [Concomitant]
     Active Substance: DICLOFENAC SODIUM
     Indication: Product used for unknown indication
  114. DICLOFENAC SODIUM [Concomitant]
     Active Substance: DICLOFENAC SODIUM
     Route: 047
  115. DIPHENHYDRAMINE HYDROCHLORIDE [Concomitant]
     Active Substance: DIPHENHYDRAMINE HYDROCHLORIDE
     Indication: Rheumatoid arthritis
  116. DOCONEXENT\ICOSAPENT [Concomitant]
     Active Substance: DOCONEXENT\ICOSAPENT
     Indication: Product used for unknown indication
  117. DOCONEXENT\ICOSAPENT [Concomitant]
     Active Substance: DOCONEXENT\ICOSAPENT
  118. EMEND [Concomitant]
     Active Substance: APREPITANT
     Indication: Product used for unknown indication
  119. ENBREL [Concomitant]
     Active Substance: ETANERCEPT
     Indication: Rheumatoid arthritis
     Route: 048
  120. ENBREL [Concomitant]
     Active Substance: ETANERCEPT
  121. ENBREL [Concomitant]
     Active Substance: ETANERCEPT
  122. ENBREL [Concomitant]
     Active Substance: ETANERCEPT
     Route: 058
  123. ENBREL [Concomitant]
     Active Substance: ETANERCEPT
     Route: 058
  124. ENBREL [Concomitant]
     Active Substance: ETANERCEPT
     Route: 061
  125. ENTYVIO [Concomitant]
     Active Substance: VEDOLIZUMAB
     Indication: Product used for unknown indication
     Route: 042
  126. ERELZI [Concomitant]
     Active Substance: ETANERCEPT-SZZS
     Indication: Product used for unknown indication
  127. ERGOCALCIFEROL [Concomitant]
     Active Substance: ERGOCALCIFEROL
     Indication: Product used for unknown indication
  128. FLUMETHASONE PIVALATE [Concomitant]
     Active Substance: FLUMETHASONE PIVALATE
     Indication: Rheumatoid arthritis
  129. FOLIC ACID [Concomitant]
     Active Substance: FOLIC ACID
     Indication: Rheumatoid arthritis
  130. FOLIC ACID [Concomitant]
     Active Substance: FOLIC ACID
     Route: 058
  131. FOLIC ACID [Concomitant]
     Active Substance: FOLIC ACID
  132. FOLIC ACID [Concomitant]
     Active Substance: FOLIC ACID
  133. FOLIC ACID [Concomitant]
     Active Substance: FOLIC ACID
  134. FOLIC ACID [Concomitant]
     Active Substance: FOLIC ACID
  135. FOLIC ACID [Concomitant]
     Active Substance: FOLIC ACID
     Route: 016
  136. FOLIC ACID [Concomitant]
     Active Substance: FOLIC ACID
  137. FOLIC ACID [Concomitant]
     Active Substance: FOLIC ACID
  138. FOLIC ACID [Concomitant]
     Active Substance: FOLIC ACID
  139. FOLIC ACID [Concomitant]
     Active Substance: FOLIC ACID
     Route: 048
  140. FOSAMAX [Concomitant]
     Active Substance: ALENDRONATE SODIUM
     Indication: Rheumatoid arthritis
     Route: 048
  141. FOSAMAX [Concomitant]
     Active Substance: ALENDRONATE SODIUM
     Route: 048
  142. GLUCOSAMINE [Concomitant]
     Active Substance: GLUCOSAMINE
     Indication: Product used for unknown indication
  143. GLUCOSAMINE [Concomitant]
     Active Substance: GLUCOSAMINE
  144. GOLIMUMAB [Concomitant]
     Active Substance: GOLIMUMAB
     Indication: Rheumatoid arthritis
     Route: 058
  145. HUMIRA [Concomitant]
     Active Substance: ADALIMUMAB
     Indication: Rheumatoid arthritis
     Route: 058
  146. HYDROCORTISONE SODIUM SUCCINATE [Concomitant]
     Active Substance: HYDROCORTISONE SODIUM SUCCINATE
     Indication: Product used for unknown indication
     Route: 048
  147. HYDROXYCHLOROQUINE [Concomitant]
     Active Substance: HYDROXYCHLOROQUINE
     Indication: Rheumatoid arthritis
     Route: 048
  148. HYDROXYCHLOROQUINE [Concomitant]
     Active Substance: HYDROXYCHLOROQUINE
     Route: 048
  149. HYDROXYCHLOROQUINE [Concomitant]
     Active Substance: HYDROXYCHLOROQUINE
  150. HYDROXYCHLOROQUINE [Concomitant]
     Active Substance: HYDROXYCHLOROQUINE
  151. HYDROXYCHLOROQUINE SULFATE [Concomitant]
     Active Substance: HYDROXYCHLOROQUINE SULFATE
     Indication: Rheumatoid arthritis
  152. HYDROXYCHLOROQUINE SULFATE [Concomitant]
     Active Substance: HYDROXYCHLOROQUINE SULFATE
     Route: 048
  153. HYDROXYCHLOROQUINE SULFATE [Concomitant]
     Active Substance: HYDROXYCHLOROQUINE SULFATE
     Route: 048
  154. HYDROXYCHLOROQUINE SULFATE [Concomitant]
     Active Substance: HYDROXYCHLOROQUINE SULFATE
  155. HYDROXYCHLOROQUINE SULFATE [Concomitant]
     Active Substance: HYDROXYCHLOROQUINE SULFATE
     Route: 048
  156. HYDROXYCHLOROQUINE SULFATE [Concomitant]
     Active Substance: HYDROXYCHLOROQUINE SULFATE
     Route: 048
  157. HYDROXYCHLOROQUINE SULFATE [Concomitant]
     Active Substance: HYDROXYCHLOROQUINE SULFATE
     Route: 048
  158. HYDROXYCHLOROQUINE SULFATE [Concomitant]
     Active Substance: HYDROXYCHLOROQUINE SULFATE
     Route: 048
  159. HYRIMOZ [Concomitant]
     Active Substance: ADALIMUMAB-ADAZ
     Indication: Rheumatoid arthritis
     Route: 058
  160. HYRIMOZ [Concomitant]
     Active Substance: ADALIMUMAB-ADAZ
     Indication: Psoriatic arthropathy
     Route: 058
  161. HYRIMOZ [Concomitant]
     Active Substance: ADALIMUMAB-ADAZ
  162. IBUPROFEN [Concomitant]
     Active Substance: IBUPROFEN
     Indication: Product used for unknown indication
  163. IBUPROFEN [Concomitant]
     Active Substance: IBUPROFEN
  164. INDOMETHACIN [Concomitant]
     Active Substance: INDOMETHACIN
     Indication: Product used for unknown indication
  165. INFLIXIMAB [Concomitant]
     Active Substance: INFLIXIMAB
     Indication: Rheumatoid arthritis
     Route: 042
  166. INFLIXIMAB [Concomitant]
     Active Substance: INFLIXIMAB
     Route: 042
  167. INFLIXIMAB [Concomitant]
     Active Substance: INFLIXIMAB
     Route: 042
  168. ISOPROPYL ALCOHOL [Concomitant]
     Active Substance: ISOPROPYL ALCOHOL
     Indication: Product used for unknown indication
     Route: 061
  169. LANSOPRAZOLE [Concomitant]
     Active Substance: LANSOPRAZOLE
     Indication: Product used for unknown indication
  170. LANSOPRAZOLE [Concomitant]
     Active Substance: LANSOPRAZOLE
  171. LORAZEPAM [Concomitant]
     Active Substance: LORAZEPAM
     Indication: Product used for unknown indication
  172. LORAZEPAM [Concomitant]
     Active Substance: LORAZEPAM
  173. METHOTREXATE [Concomitant]
     Active Substance: METHOTREXATE
     Indication: Rheumatoid arthritis
     Route: 042
  174. METHOTREXATE [Concomitant]
     Active Substance: METHOTREXATE
  175. METHOTREXATE [Concomitant]
     Active Substance: METHOTREXATE
     Route: 058
  176. METHOTREXATE [Concomitant]
     Active Substance: METHOTREXATE
     Route: 048
  177. METHOTREXATE [Concomitant]
     Active Substance: METHOTREXATE
     Route: 048
  178. METHOTREXATE [Concomitant]
     Active Substance: METHOTREXATE
     Route: 048
  179. METHOTREXATE [Concomitant]
     Active Substance: METHOTREXATE
     Route: 048
  180. METHOTREXATE [Concomitant]
     Active Substance: METHOTREXATE
     Route: 048
  181. METHOTREXATE [Concomitant]
     Active Substance: METHOTREXATE
     Route: 048
  182. METHOTREXATE [Concomitant]
     Active Substance: METHOTREXATE
     Route: 048
  183. METHOTREXATE [Concomitant]
     Active Substance: METHOTREXATE
     Route: 048
  184. METHOTREXATE [Concomitant]
     Active Substance: METHOTREXATE
  185. METHOTREXATE [Concomitant]
     Active Substance: METHOTREXATE
  186. METHOTREXATE [Concomitant]
     Active Substance: METHOTREXATE
  187. METHOTREXATE [Concomitant]
     Active Substance: METHOTREXATE
     Route: 048
  188. METHOTREXATE [Concomitant]
     Active Substance: METHOTREXATE
  189. METHOTREXATE [Concomitant]
     Active Substance: METHOTREXATE
     Route: 048
  190. NAPROXEN SODIUM [Concomitant]
     Active Substance: NAPROXEN SODIUM
     Indication: Rheumatoid arthritis
  191. OXYCODONE [Concomitant]
     Active Substance: OXYCODONE
     Indication: Product used for unknown indication
  192. OXYCODONE HYDROCHLORIDE [Concomitant]
     Active Substance: OXYCODONE HYDROCHLORIDE
     Indication: Product used for unknown indication
  193. OXYCODONE HYDROCHLORIDE [Concomitant]
     Active Substance: OXYCODONE HYDROCHLORIDE
  194. OXYCODONE HYDROCHLORIDE [Concomitant]
     Active Substance: OXYCODONE HYDROCHLORIDE
  195. OXYCODONE HYDROCHLORIDE [Concomitant]
     Active Substance: OXYCODONE HYDROCHLORIDE
  196. OXYCODONE HYDROCHLORIDE [Concomitant]
     Active Substance: OXYCODONE HYDROCHLORIDE
  197. OXYCODONE HYDROCHLORIDE [Concomitant]
     Active Substance: OXYCODONE HYDROCHLORIDE
  198. PARA-AMINOSALICYLIC ACID [Concomitant]
     Active Substance: AMINOSALICYLIC ACID
     Indication: Product used for unknown indication
  199. PERIOGARD [Concomitant]
     Active Substance: CHLORHEXIDINE GLUCONATE
     Indication: Product used for unknown indication
     Route: 002
  200. PHTHALYLSULFATHIAZOLE [Concomitant]
     Active Substance: PHTHALYLSULFATHIAZOLE
     Route: 048
  201. PHTHALYLSULFATHIAZOLE [Concomitant]
     Active Substance: PHTHALYLSULFATHIAZOLE
     Route: 048
  202. PHTHALYLSULFATHIAZOLE [Concomitant]
     Active Substance: PHTHALYLSULFATHIAZOLE
     Route: 048
  203. PHTHALYLSULFATHIAZOLE [Concomitant]
     Active Substance: PHTHALYLSULFATHIAZOLE
     Route: 048
  204. PHTHALYLSULFATHIAZOLE [Concomitant]
     Active Substance: PHTHALYLSULFATHIAZOLE
     Route: 048
  205. PHTHALYLSULFATHIAZOLE [Concomitant]
     Active Substance: PHTHALYLSULFATHIAZOLE
     Route: 048
  206. PHTHALYLSULFATHIAZOLE [Concomitant]
     Active Substance: PHTHALYLSULFATHIAZOLE
     Route: 048
  207. PHTHALYLSULFATHIAZOLE [Concomitant]
     Active Substance: PHTHALYLSULFATHIAZOLE
     Route: 048
  208. PHTHALYLSULFATHIAZOLE [Concomitant]
     Active Substance: PHTHALYLSULFATHIAZOLE
     Route: 048
  209. PREDNISOLONE [Concomitant]
     Active Substance: PREDNISOLONE
     Indication: Product used for unknown indication
  210. PREDNISONE [Concomitant]
     Active Substance: PREDNISONE
     Indication: Product used for unknown indication
     Route: 048
  211. PREDNISONE [Concomitant]
     Active Substance: PREDNISONE
     Route: 048
  212. PREDNISONE [Concomitant]
     Active Substance: PREDNISONE
     Route: 042
  213. PREDNISONE [Concomitant]
     Active Substance: PREDNISONE
     Route: 048
  214. PREDNISONE [Concomitant]
     Active Substance: PREDNISONE
     Route: 048
  215. PREDNISONE [Concomitant]
     Active Substance: PREDNISONE
     Route: 048
  216. PREDNISONE [Concomitant]
     Active Substance: PREDNISONE
  217. PSEUDOEPHEDRINE [Concomitant]
     Active Substance: PSEUDOEPHEDRINE
     Indication: Rheumatoid arthritis
  218. PSEUDOEPHEDRINE HYDROCHLORIDE [Concomitant]
     Active Substance: PSEUDOEPHEDRINE HYDROCHLORIDE
     Indication: Product used for unknown indication
  219. PSEUDOEPHEDRINE HYDROCHLORIDE [Concomitant]
     Active Substance: PSEUDOEPHEDRINE HYDROCHLORIDE
  220. PSEUDOEPHEDRINE HYDROCHLORIDE [Concomitant]
     Active Substance: PSEUDOEPHEDRINE HYDROCHLORIDE
  221. PSEUDOEPHEDRINE HYDROCHLORIDE AND TRIPROLIDINE HYDROCHLORIDE [Concomitant]
     Active Substance: PSEUDOEPHEDRINE HYDROCHLORIDE\TRIPROLIDINE HYDROCHLORIDE
     Indication: Product used for unknown indication
  222. QUETIAPINE FUMARATE [Concomitant]
     Active Substance: QUETIAPINE FUMARATE
     Indication: Product used for unknown indication
  223. QUETIAPINE FUMARATE [Concomitant]
     Active Substance: QUETIAPINE FUMARATE
  224. CETIRIZINE HYDROCHLORIDE [Concomitant]
     Active Substance: CETIRIZINE HYDROCHLORIDE
     Indication: Product used for unknown indication
  225. CETIRIZINE HYDROCHLORIDE [Concomitant]
     Active Substance: CETIRIZINE HYDROCHLORIDE
  226. CETIRIZINE HYDROCHLORIDE\PSEUDOEPHEDRINE HYDROCHLORIDE [Concomitant]
     Active Substance: CETIRIZINE HYDROCHLORIDE\PSEUDOEPHEDRINE HYDROCHLORIDE
     Indication: Rheumatoid arthritis
  227. REMICADE [Concomitant]
     Active Substance: INFLIXIMAB
     Indication: Rheumatoid arthritis
     Route: 042
  228. REMICADE [Concomitant]
     Active Substance: INFLIXIMAB
     Indication: Psoriatic arthropathy
  229. REMICADE [Concomitant]
     Active Substance: INFLIXIMAB
     Indication: Psoriasis
     Route: 042
  230. REMICADE [Concomitant]
     Active Substance: INFLIXIMAB
     Indication: Crohn^s disease
  231. REMICADE [Concomitant]
     Active Substance: INFLIXIMAB
     Indication: Ankylosing spondylitis
  232. RITUXIMAB [Concomitant]
     Active Substance: RITUXIMAB
     Indication: Rheumatoid arthritis
     Route: 042
  233. RITUXIMAB [Concomitant]
     Active Substance: RITUXIMAB
     Indication: Abdominal discomfort
     Route: 041
  234. RITUXIMAB [Concomitant]
     Active Substance: RITUXIMAB
     Route: 058
  235. RITUXIMAB [Concomitant]
     Active Substance: RITUXIMAB
     Route: 042
  236. SULFASALAZINE [Concomitant]
     Active Substance: SULFASALAZINE
     Indication: Product used for unknown indication
  237. DICLOFENAC SODIUM [Concomitant]
     Active Substance: DICLOFENAC SODIUM
     Indication: Product used for unknown indication
  238. DICLOFENAC SODIUM [Concomitant]
     Active Substance: DICLOFENAC SODIUM
     Route: 047
  239. DILTIAZEM HYDROCHLORIDE [Concomitant]
     Active Substance: DILTIAZEM HYDROCHLORIDE
     Indication: Product used for unknown indication
  240. LEFLUNOMIDE [Concomitant]
     Active Substance: LEFLUNOMIDE
     Indication: Rheumatoid arthritis
  241. LEFLUNOMIDE [Concomitant]
     Active Substance: LEFLUNOMIDE
     Route: 058
  242. LEFLUNOMIDE [Concomitant]
     Active Substance: LEFLUNOMIDE
  243. LEFLUNOMIDE [Concomitant]
     Active Substance: LEFLUNOMIDE
     Route: 048
  244. LEFLUNOMIDE [Concomitant]
     Active Substance: LEFLUNOMIDE
     Route: 048
  245. OXYCODONE AND ACETAMINOPHEN [Concomitant]
     Active Substance: ACETAMINOPHEN\OXYCODONE HYDROCHLORIDE
     Indication: Rheumatoid arthritis
  246. OXYCODONE AND ACETAMINOPHEN [Concomitant]
     Active Substance: ACETAMINOPHEN\OXYCODONE HYDROCHLORIDE
  247. OXYCODONE AND ACETAMINOPHEN [Concomitant]
     Active Substance: ACETAMINOPHEN\OXYCODONE HYDROCHLORIDE
  248. OXYCODONE AND ACETAMINOPHEN [Concomitant]
     Active Substance: ACETAMINOPHEN\OXYCODONE HYDROCHLORIDE
  249. OXYCODONE AND ACETAMINOPHEN [Concomitant]
     Active Substance: ACETAMINOPHEN\OXYCODONE HYDROCHLORIDE
  250. SECUKINUMAB [Concomitant]
     Active Substance: SECUKINUMAB
     Indication: Product used for unknown indication
  251. SIMPONI [Concomitant]
     Active Substance: GOLIMUMAB
     Indication: Rheumatoid arthritis
     Route: 058
  252. SIMPONI [Concomitant]
     Active Substance: GOLIMUMAB
     Route: 058
  253. SIMPONI [Concomitant]
     Active Substance: GOLIMUMAB
  254. STELARA [Concomitant]
     Active Substance: USTEKINUMAB
     Indication: Product used for unknown indication
     Route: 058
  255. SULFAMETHOXAZOLE [Concomitant]
     Active Substance: SULFAMETHOXAZOLE
     Indication: Rheumatoid arthritis
     Route: 067
  256. SULFAMETHOXAZOLE [Concomitant]
     Active Substance: SULFAMETHOXAZOLE
  257. SULFAMETHOXAZOLE\TRIMETHOPRIM [Concomitant]
     Active Substance: SULFAMETHOXAZOLE\TRIMETHOPRIM
     Indication: Product used for unknown indication
     Route: 067
  258. SULFASALAZINE [Concomitant]
     Active Substance: SULFASALAZINE
     Indication: Rheumatoid arthritis
  259. SULFASALAZINE [Concomitant]
     Active Substance: SULFASALAZINE
     Indication: Product used for unknown indication
     Route: 048
  260. SULFASALAZINE [Concomitant]
     Active Substance: SULFASALAZINE
     Route: 048
  261. SULFASALAZINE [Concomitant]
     Active Substance: SULFASALAZINE
  262. SULFASALAZINE [Concomitant]
     Active Substance: SULFASALAZINE
  263. SULFASALAZINE [Concomitant]
     Active Substance: SULFASALAZINE
     Route: 048
  264. SULFASALAZINE [Concomitant]
     Active Substance: SULFASALAZINE
  265. SULFASALAZINE [Concomitant]
     Active Substance: SULFASALAZINE
  266. SULFASALAZINE [Concomitant]
     Active Substance: SULFASALAZINE
  267. SULFASALAZINE [Concomitant]
     Active Substance: SULFASALAZINE
     Route: 048
  268. SULFASALAZINE [Concomitant]
     Active Substance: SULFASALAZINE
  269. SULFASALAZINE [Concomitant]
     Active Substance: SULFASALAZINE
     Route: 048
  270. SULFASALAZINE [Concomitant]
     Active Substance: SULFASALAZINE
     Route: 048
  271. SULFASALAZINE [Concomitant]
     Active Substance: SULFASALAZINE
  272. SULFASALAZINE [Concomitant]
     Active Substance: SULFASALAZINE
  273. SULFASALAZINE [Concomitant]
     Active Substance: SULFASALAZINE
  274. TOCILIZUMAB [Concomitant]
     Active Substance: TOCILIZUMAB
     Indication: Rheumatoid arthritis
     Route: 042
  275. TOFACITINIB CITRATE [Concomitant]
     Active Substance: TOFACITINIB CITRATE
     Indication: Rheumatoid arthritis
  276. TOFACITINIB CITRATE [Concomitant]
     Active Substance: TOFACITINIB CITRATE
  277. TOFACITINIB CITRATE [Concomitant]
     Active Substance: TOFACITINIB CITRATE
  278. TOFACITINIB CITRATE [Concomitant]
     Active Substance: TOFACITINIB CITRATE
  279. TOFACITINIB CITRATE [Concomitant]
     Active Substance: TOFACITINIB CITRATE
  280. TOFACITINIB CITRATE [Concomitant]
     Active Substance: TOFACITINIB CITRATE
  281. TOFACITINIB CITRATE [Concomitant]
     Active Substance: TOFACITINIB CITRATE
  282. TOFACITINIB CITRATE [Concomitant]
     Active Substance: TOFACITINIB CITRATE
  283. TOPICORT [Concomitant]
     Active Substance: DESOXIMETASONE
     Indication: Product used for unknown indication
     Route: 003
  284. TYLENOL [Concomitant]
     Active Substance: ACETAMINOPHEN
     Indication: Product used for unknown indication
  285. TYLENOL [Concomitant]
     Active Substance: ACETAMINOPHEN
  286. TYLENOL WITH CODEINE [Concomitant]
     Active Substance: ACETAMINOPHEN\CODEINE PHOSPHATE
     Indication: Product used for unknown indication
  287. TYLENOL WITH CODEINE [Concomitant]
     Active Substance: ACETAMINOPHEN\CODEINE PHOSPHATE
  288. VITAMIN C [Concomitant]
     Active Substance: ASCORBIC ACID
     Indication: Product used for unknown indication
  289. VITAMIN C [Concomitant]
     Active Substance: ASCORBIC ACID
  290. VITAMIN D3 [Concomitant]
     Active Substance: CHOLECALCIFEROL
     Indication: Product used for unknown indication
  291. XELJANZ [Concomitant]
     Active Substance: TOFACITINIB CITRATE
     Indication: Product used for unknown indication
     Route: 048
  292. XELJANZ [Concomitant]
     Active Substance: TOFACITINIB CITRATE
  293. XELJANZ [Concomitant]
     Active Substance: TOFACITINIB CITRATE
     Route: 048
  294. XELJANZ [Concomitant]
     Active Substance: TOFACITINIB CITRATE
     Route: 048
  295. ZOPICLONE [Concomitant]
     Active Substance: ZOPICLONE
     Indication: Product used for unknown indication
  296. ZOPICLONE [Concomitant]
     Active Substance: ZOPICLONE
  297. ZOPICLONE [Concomitant]
     Active Substance: ZOPICLONE

REACTIONS (75)
  - Abdominal discomfort [Unknown]
  - Abdominal pain upper [Unknown]
  - Anti-cyclic citrullinated peptide antibody positive [Unknown]
  - Asthenia [Unknown]
  - C-reactive protein abnormal [Unknown]
  - Condition aggravated [Unknown]
  - Contusion [Unknown]
  - Diarrhoea [Unknown]
  - Discomfort [Unknown]
  - Dyspnoea [Unknown]
  - Fibromyalgia [Unknown]
  - Frequent bowel movements [Unknown]
  - Hand deformity [Unknown]
  - Hepatic enzyme increased [Unknown]
  - Hypersensitivity [Unknown]
  - Infection [Unknown]
  - Insomnia [Unknown]
  - Joint range of motion decreased [Unknown]
  - Joint swelling [Unknown]
  - Lip dry [Unknown]
  - Liver disorder [Unknown]
  - Lower limb fracture [Unknown]
  - Lower respiratory tract infection [Unknown]
  - Lung disorder [Unknown]
  - Lupus-like syndrome [Unknown]
  - Malaise [Unknown]
  - Medication error [Unknown]
  - Muscle injury [Unknown]
  - Muscle spasms [Unknown]
  - Musculoskeletal pain [Unknown]
  - Musculoskeletal stiffness [Unknown]
  - Night sweats [Unknown]
  - Obesity [Unknown]
  - Oedema [Unknown]
  - Oedema peripheral [Unknown]
  - Osteoarthritis [Unknown]
  - Osteoporosis [Unknown]
  - Pain in extremity [Unknown]
  - Pancreatitis [Unknown]
  - Paraesthesia [Unknown]
  - Peripheral swelling [Unknown]
  - Peripheral venous disease [Unknown]
  - Pneumonia [Unknown]
  - Acquired porphyria [Unknown]
  - Product use issue [Unknown]
  - Pruritus [Unknown]
  - Psoriatic arthropathy [Unknown]
  - Pulmonary fibrosis [Unknown]
  - Pyrexia [Unknown]
  - Rash [Unknown]
  - Rectal haemorrhage [Unknown]
  - Retinitis [Unknown]
  - Rheumatic fever [Unknown]
  - Rheumatoid arthritis [Unknown]
  - Rheumatoid factor positive [Unknown]
  - Sinusitis [Unknown]
  - Sleep disorder [Unknown]
  - Sleep disorder due to general medical condition, insomnia type [Unknown]
  - Stomatitis [Unknown]
  - Swelling [Unknown]
  - Synovitis [Unknown]
  - Systemic lupus erythematosus [Unknown]
  - Therapeutic product effect decreased [Unknown]
  - Therapy non-responder [Unknown]
  - Treatment failure [Unknown]
  - Type 2 diabetes mellitus [Unknown]
  - Urticaria [Unknown]
  - Weight decreased [Unknown]
  - Weight fluctuation [Unknown]
  - Weight increased [Unknown]
  - Wheezing [Unknown]
  - Wound [Unknown]
  - Wound infection [Unknown]
  - Adverse event [Unknown]
  - Off label use [Unknown]
